FAERS Safety Report 21601469 (Version 1)
Quarter: 2022Q4

REPORT INFORMATION
  Report Type: Spontaneous
  Country: CH (occurrence: CH)
  Receive Date: 20221116
  Receipt Date: 20221116
  Transmission Date: 20230113
  Serious: Yes (Other)
  Sender: FDA-Public Use
  Company Number: None

PATIENT
  Age: 48 Year
  Sex: Female

DRUGS (4)
  1. ACTEMRA [Suspect]
     Active Substance: TOCILIZUMAB
     Indication: Scleroderma
     Route: 058
     Dates: start: 202110, end: 202202
  2. ILOPROST TROMETHAMINE [Suspect]
     Active Substance: ILOPROST TROMETHAMINE
     Indication: Scleroderma
     Dosage: DOSE INCREASED TO 1X/WEEK AT THE END OF 2021, THEN RETURNED TO THE INITIAL DOSE (EXACT DATES...
     Route: 042
     Dates: start: 201604
  3. TADALAFIL [Suspect]
     Active Substance: TADALAFIL
     Indication: Scleroderma
     Dosage: DOSE INCREASED PROGRESSIVELY FROM 5 MG/DAY IN APRIL 2016 TO 20 MG/DAY IN DECEMBER 2021
     Route: 048
     Dates: start: 201604
  4. ASPIRIN [Concomitant]
     Active Substance: ASPIRIN
     Route: 048
     Dates: start: 201702

REACTIONS (1)
  - Colitis ulcerative [Recovered/Resolved]

NARRATIVE: CASE EVENT DATE: 20211201
